FAERS Safety Report 20006066 (Version 1)
Quarter: 2021Q4

REPORT INFORMATION
  Report Type: Spontaneous
  Country: US (occurrence: US)
  Receive Date: 20211028
  Receipt Date: 20211028
  Transmission Date: 20220303
  Serious: No
  Sender: FDA-Public Use
  Company Number: US-UNITED THERAPEUTICS-UNT-2021-021768

PATIENT
  Age: 82 Year
  Sex: Female

DRUGS (2)
  1. TYVASO [Suspect]
     Active Substance: TREPROSTINIL
     Indication: Pulmonary arterial hypertension
     Dosage: UNK
     Dates: start: 20211006
  2. TYVASO [Suspect]
     Active Substance: TREPROSTINIL
     Dosage: 30 ?G, QID
     Dates: start: 202110

REACTIONS (4)
  - Pain in extremity [Unknown]
  - Hyperhidrosis [Recovered/Resolved]
  - Oxygen saturation decreased [Unknown]
  - Headache [Unknown]

NARRATIVE: CASE EVENT DATE: 20211001
